FAERS Safety Report 12906206 (Version 3)
Quarter: 2017Q1

REPORT INFORMATION
  Report Type: Spontaneous
  Country: DE (occurrence: DE)
  Receive Date: 20161103
  Receipt Date: 20170102
  Transmission Date: 20170428
  Serious: Yes (Life-Threatening, Hospitalization, Other)
  Sender: FDA-Public Use
  Company Number: PHHY2016DE150081

PATIENT
  Sex: Male

DRUGS (4)
  1. PANTOPRAZOLE [Concomitant]
     Active Substance: PANTOPRAZOLE SODIUM
     Indication: PROPHYLAXIS
     Dosage: 20 MG, QD
     Route: 048
  2. DICLOFENAC [Concomitant]
     Active Substance: DICLOFENAC
     Indication: SPONDYLITIS
     Dosage: 75 MG, BID
     Route: 048
  3. RAMIPRIL COMP [Concomitant]
     Active Substance: HYDROCHLOROTHIAZIDE\RAMIPRIL
     Indication: HYPERTENSION
     Route: 048
  4. COSENTYX [Suspect]
     Active Substance: SECUKINUMAB
     Indication: SPONDYLITIS
     Dosage: 150 MG, QW
     Route: 058
     Dates: start: 20160510, end: 201609

REACTIONS (5)
  - Anal fistula [Recovering/Resolving]
  - Urosepsis [Recovered/Resolved]
  - Urinary tract infection [Recovered/Resolved]
  - Crohn^s disease [Recovered/Resolved]
  - Inappropriate schedule of drug administration [Unknown]

NARRATIVE: CASE EVENT DATE: 20160930
